FAERS Safety Report 25466164 (Version 1)
Quarter: 2025Q2

REPORT INFORMATION
  Report Type: Spontaneous
  Country: US (occurrence: US)
  Receive Date: 20250623
  Receipt Date: 20250623
  Transmission Date: 20250717
  Serious: No
  Sender: BIOVITRUM
  Company Number: US-BIOVITRUM-2025-US-008691

PATIENT
  Age: 66 Year
  Sex: Male

DRUGS (3)
  1. VONJO [Suspect]
     Active Substance: PACRITINIB
     Indication: Myelofibrosis
     Route: 048
     Dates: start: 20250528
  2. PANTOPRAZOLE SODIUM (PROTONIX PO) [Concomitant]
     Indication: Product used for unknown indication
     Route: 048
  3. SUCRALFATE [Concomitant]
     Active Substance: SUCRALFATE
     Indication: Product used for unknown indication

REACTIONS (3)
  - Dizziness [Unknown]
  - Diarrhoea [Unknown]
  - Asthenia [Unknown]
